FAERS Safety Report 7530073-9 (Version None)
Quarter: 2011Q2

REPORT INFORMATION
  Report Type: 
  Country: None (occurrence: None)
  Receive Date: 20110607
  Receipt Date: 20110602
  Transmission Date: 20111010
  Serious: Yes (Death, Life-Threatening, Hospitalization, Other)
  Sender: FDA-Public Use
  Company Number: PHHY2011BR48310

PATIENT
  Sex: Male

DRUGS (2)
  1. RADIOTHERAPY [Concomitant]
  2. DIOVAN [Suspect]
     Indication: HYPERTENSION
     Dosage: 80 MG, QD
     Route: 048

REACTIONS (16)
  - HAEMORRHAGE [None]
  - SEPSIS [None]
  - BLOOD URINE PRESENT [None]
  - BLADDER CYST [None]
  - RENAL IMPAIRMENT [None]
  - HEPATIC CIRRHOSIS [None]
  - WEIGHT INCREASED [None]
  - PROSTATE CANCER [None]
  - CHANGE OF BOWEL HABIT [None]
  - ACUTE RESPIRATORY FAILURE [None]
  - HEPATIC FAILURE [None]
  - RENAL FAILURE [None]
  - OEDEMA [None]
  - COAGULOPATHY [None]
  - PULMONARY OEDEMA [None]
  - COMA [None]
